FAERS Safety Report 5339345-X (Version None)
Quarter: 2007Q2

REPORT INFORMATION
  Report Type: 
  Country: None (occurrence: None)
  Receive Date: 20070322
  Receipt Date: 20070117
  Transmission Date: 20071010
  Serious: Yes (Other)
  Sender: FDA-Public Use
  Company Number: 200614763BCC

PATIENT
  Age: 68 Year
  Sex: Male
  Weight: 54.4316 kg

DRUGS (7)
  1. ALEVE [Suspect]
     Indication: HEADACHE
     Dosage: SEE IMAGE
     Route: 048
     Dates: start: 20061001
  2. ALEVE [Suspect]
     Indication: HEADACHE
     Dosage: SEE IMAGE
     Route: 048
     Dates: start: 20061119
  3. ALEVE [Suspect]
     Indication: HEADACHE
     Dosage: SEE IMAGE
     Route: 048
     Dates: start: 20061122
  4. WARFARIN SODIUM [Concomitant]
  5. BLOOD PRESSURE MEDICATION [Concomitant]
  6. HEART MEDICINE [Concomitant]
  7. CHOLESTEROL MEDICINE [Concomitant]

REACTIONS (2)
  - ABDOMINAL PAIN UPPER [None]
  - HAEMATOCHEZIA [None]
